APPROVED DRUG PRODUCT: EZETIMIBE
Active Ingredient: EZETIMIBE
Strength: 10MG
Dosage Form/Route: TABLET;ORAL
Application: A211159 | Product #001
Applicant: MACLEODS PHARMACEUTICALS LTD
Approved: Apr 29, 2024 | RLD: No | RS: No | Type: DISCN